FAERS Safety Report 11618099 (Version 1)
Quarter: 2015Q4

REPORT INFORMATION
  Report Type: Spontaneous
  Country: US (occurrence: US)
  Receive Date: 20151010
  Receipt Date: 20151010
  Transmission Date: 20160304
  Serious: No
  Sender: FDA-Public Use
  Company Number: US-SHIRE-US201512558

PATIENT
  Age: 60 Year
  Sex: Female

DRUGS (1)
  1. VYVANSE [Suspect]
     Active Substance: LISDEXAMFETAMINE DIMESYLATE
     Indication: ATTENTION DEFICIT/HYPERACTIVITY DISORDER
     Dosage: 40 MG, 1X/DAY:QD (AT 6 AM)
     Route: 048
     Dates: start: 201510

REACTIONS (5)
  - Fatigue [Unknown]
  - Affect lability [Unknown]
  - Anxiety [Unknown]
  - Depressed mood [Unknown]
  - Feeling of relaxation [Unknown]

NARRATIVE: CASE EVENT DATE: 201510
